FAERS Safety Report 5061343-4 (Version None)
Quarter: 2006Q3

REPORT INFORMATION
  Report Type: 
  Country: None (occurrence: None)
  Receive Date: 20060719
  Receipt Date: 20060719
  Transmission Date: 20061208
  Serious: No
  Sender: FDA-Public Use
  Company Number: None

PATIENT
  Sex: Male

DRUGS (2)
  1. ACYCLOVIR [Suspect]
     Indication: MENINGITIS
     Dosage: 1000 MG Q 8 H IV
     Route: 042
     Dates: start: 20060407, end: 20060410
  2. ACYCLOVIR [Suspect]
     Indication: PROPHYLAXIS
     Dosage: 1000 MG Q 8 H IV
     Route: 042
     Dates: start: 20060407, end: 20060410

REACTIONS (2)
  - NEPHROPATHY [None]
  - RENAL FAILURE ACUTE [None]
